FAERS Safety Report 10490365 (Version 3)
Quarter: 2014Q4

REPORT INFORMATION
  Report Type: Spontaneous
  Country: JP (occurrence: JP)
  Receive Date: 20141002
  Receipt Date: 20141024
  Transmission Date: 20150528
  Serious: Yes (Life-Threatening, Hospitalization, Disabling, Other)
  Sender: FDA-Public Use
  Company Number: JP-PFIZER INC-2014252540

PATIENT
  Age: 85 Year
  Sex: Female
  Weight: 49.8 kg

DRUGS (8)
  1. DONEPEZIL OD [Concomitant]
     Dosage: 5 MG, 1X/DAY
     Route: 048
     Dates: start: 20140728
  2. LYRICA [Suspect]
     Active Substance: PREGABALIN
     Dosage: 75 MG, 2X/DAY
     Route: 048
     Dates: start: 20101025, end: 20140728
  3. BAYASPIRIN [Concomitant]
     Active Substance: ASPIRIN
     Dosage: 100 MG, 1X/DAY
     Route: 048
     Dates: start: 20080116
  4. MAGMITT [Concomitant]
     Active Substance: MAGNESIUM OXIDE
     Dosage: 250 MG, 1X/DAY
     Route: 048
     Dates: start: 20120702
  5. AMLODIPINE [Concomitant]
     Active Substance: AMLODIPINE BESYLATE
     Dosage: 5 MG, 1X/DAY
     Route: 048
     Dates: start: 20040721
  6. TAKEPRON OD [Concomitant]
     Active Substance: LANSOPRAZOLE
     Dosage: 15 MG, 1X/DAY
     Route: 048
     Dates: start: 20040721
  7. RIVOTRIL [Concomitant]
     Active Substance: CLONAZEPAM
     Dosage: 0.5 MG, 1X/DAY
     Route: 048
     Dates: start: 20070926
  8. TRAMAL [Concomitant]
     Active Substance: TRAMADOL
     Dosage: 25 MG, 2X/DAY
     Route: 048
     Dates: start: 20140728

REACTIONS (3)
  - Altered state of consciousness [Recovered/Resolved]
  - Water intoxication [Recovered/Resolved]
  - Urinary retention [Recovering/Resolving]

NARRATIVE: CASE EVENT DATE: 20140804
